FAERS Safety Report 4634466-9 (Version None)
Quarter: 2005Q2

REPORT INFORMATION
  Report Type: 
  Country: None (occurrence: None)
  Receive Date: 20050412
  Receipt Date: 20050404
  Transmission Date: 20051028
  Serious: Yes (Other)
  Sender: FDA-Public Use
  Company Number: HQWYE699805APR05

PATIENT
  Sex: Female

DRUGS (1)
  1. VENLAFAXINE HCL [Suspect]
     Dosage: 50 MG 1X PER 1 DAY ORAL
     Route: 048

REACTIONS (2)
  - CIRCULATORY COLLAPSE [None]
  - NAUSEA [None]
